FAERS Safety Report 16784697 (Version 1)
Quarter: 2019Q3

REPORT INFORMATION
  Report Type: Spontaneous
  Country: US (occurrence: US)
  Receive Date: 20190717
  Receipt Date: 20190717
  Transmission Date: 20191005
  Serious: Yes (Hospitalization)
  Sender: FDA-Public Use
  Company Number: None

PATIENT
  Age: 68 Year
  Sex: Male

DRUGS (1)
  1. METHYLPREDNISOLONE. [Suspect]
     Active Substance: METHYLPREDNISOLONE
     Indication: CHRONIC OBSTRUCTIVE PULMONARY DISEASE
     Route: 042
     Dates: start: 20190418, end: 20190418

REACTIONS (7)
  - Vitamin B12 deficiency [None]
  - Pupils unequal [None]
  - Hypercapnia [None]
  - Urinary retention [None]
  - Delirium [None]
  - Dementia [None]
  - Disinhibition [None]

NARRATIVE: CASE EVENT DATE: 20190418
